FAERS Safety Report 25358679 (Version 1)
Quarter: 2025Q2

REPORT INFORMATION
  Report Type: Spontaneous
  Country: FR (occurrence: FR)
  Receive Date: 20250526
  Receipt Date: 20250526
  Transmission Date: 20250716
  Serious: Yes (Life-Threatening)
  Sender: BIOGEN
  Company Number: None

PATIENT
  Age: 19 Year
  Sex: Female
  Weight: 57 kg

DRUGS (2)
  1. TECFIDERA [Suspect]
     Active Substance: DIMETHYL FUMARATE
     Indication: Multiple sclerosis
     Route: 050
     Dates: end: 20240615
  2. KESIMPTA [Suspect]
     Active Substance: OFATUMUMAB
     Indication: Multiple sclerosis
     Route: 050
     Dates: start: 20240701, end: 20250217

REACTIONS (1)
  - Undifferentiated nasopharyngeal carcinoma [Not Recovered/Not Resolved]

NARRATIVE: CASE EVENT DATE: 20250115
